FAERS Safety Report 25786766 (Version 1)
Quarter: 2025Q3

REPORT INFORMATION
  Report Type: Spontaneous
  Country: US (occurrence: US)
  Receive Date: 20250910
  Receipt Date: 20250910
  Transmission Date: 20251021
  Serious: No
  Sender: PFIZER
  Company Number: US-PFIZER INC-202500178522

PATIENT

DRUGS (3)
  1. KETAMINE HYDROCHLORIDE [Suspect]
     Active Substance: KETAMINE HYDROCHLORIDE
     Dates: start: 202509
  2. COCAINE [Suspect]
     Active Substance: COCAINE
     Dates: start: 202509
  3. MIDOMAFETAMINE [Suspect]
     Active Substance: MIDOMAFETAMINE
     Dates: start: 202509

REACTIONS (3)
  - Pyrexia [Unknown]
  - Pain [Unknown]
  - Fatigue [Unknown]
